FAERS Safety Report 9477150 (Version 1)
Quarter: 2013Q3

REPORT INFORMATION
  Report Type: Spontaneous
  Country: US (occurrence: US)
  Receive Date: 20130826
  Receipt Date: 20130826
  Transmission Date: 20140515
  Serious: No
  Sender: FDA-Public Use
  Company Number: US-PFIZER INC-2013245668

PATIENT
  Age: 49 Year
  Sex: Female
  Weight: 77.1 kg

DRUGS (7)
  1. PRISTIQ [Suspect]
     Indication: DEPRESSION
     Dosage: UNK
  2. PRISTIQ [Suspect]
     Indication: BIPOLAR DISORDER
     Dosage: UNK, 1X/DAY
     Dates: end: 201308
  3. PROZAC [Suspect]
     Indication: DEPRESSION
     Dosage: UNK
  4. PROZAC [Suspect]
     Indication: BIPOLAR DISORDER
  5. SEROQUEL [Suspect]
     Indication: DEPRESSION
     Dosage: 300MG DAILY
     Dates: end: 201308
  6. SEROQUEL [Suspect]
     Indication: BIPOLAR DISORDER
  7. SYNTHROID [Concomitant]
     Indication: THYROID DISORDER
     Dosage: 150 UG DAILY

REACTIONS (4)
  - Mood altered [Not Recovered/Not Resolved]
  - Emotional disorder [Not Recovered/Not Resolved]
  - Insomnia [Not Recovered/Not Resolved]
  - Drug ineffective [Not Recovered/Not Resolved]
